FAERS Safety Report 4995862-3 (Version None)
Quarter: 2006Q1

REPORT INFORMATION
  Report Type: 
  Country: None (occurrence: None)
  Receive Date: 20060315
  Receipt Date: 20051208
  Transmission Date: 20060701
  Serious: Yes (Other)
  Sender: FDA-Public Use
  Company Number: 428051

PATIENT
  Sex: Female

DRUGS (8)
  1. BONIVA [Suspect]
     Indication: OSTEOPOROSIS
     Dosage: 150 MG 1 PER MONTH ORAL
     Route: 048
     Dates: start: 20051130, end: 20051130
  2. DURAGESIC-100 [Concomitant]
  3. TEGRETOL [Concomitant]
  4. CARDIZEM [Concomitant]
  5. ZESTRIL [Concomitant]
  6. PREVACID [Concomitant]
  7. CYPROHEPTADINE (CYPROHEPTADINE HYDROCHLORIDE) [Concomitant]
  8. MIRALAX [Concomitant]

REACTIONS (3)
  - DYSKINESIA [None]
  - JAW DISORDER [None]
  - PAIN IN JAW [None]
